FAERS Safety Report 6594181-1 (Version None)
Quarter: 2010Q1

REPORT INFORMATION
  Report Type: 
  Country: None (occurrence: None)
  Receive Date: 20100222
  Receipt Date: 20100210
  Transmission Date: 20100710
  Serious: Yes (Hospitalization)
  Sender: FDA-Public Use
  Company Number: JP-ROCHE-685608

PATIENT
  Age: 49 Year
  Sex: Male

DRUGS (4)
  1. CELLCEPT [Suspect]
     Route: 048
  2. BASILIXIMAB [Concomitant]
     Route: 065
  3. TACROLIMUS HYDRATE [Concomitant]
     Route: 065
  4. PREDNISOLONE [Concomitant]
     Route: 065

REACTIONS (2)
  - CYTOMEGALOVIRUS VIRAEMIA [None]
  - GUILLAIN-BARRE SYNDROME [None]
